FAERS Safety Report 5524806-0 (Version None)
Quarter: 2007Q4

REPORT INFORMATION
  Report Type: 
  Country: None (occurrence: None)
  Receive Date: 20071116
  Receipt Date: 20071102
  Transmission Date: 20080405
  Serious: Yes (Hospitalization)
  Sender: FDA-Public Use
  Company Number: 100#08#2007-04576

PATIENT
  Age: 74 Year
  Sex: Male

DRUGS (1)
  1. CARBAMAZEPINE [Suspect]
     Indication: DRUG USE FOR UNKNOWN INDICATION

REACTIONS (13)
  - ARRHYTHMIA [None]
  - ATRIAL FIBRILLATION [None]
  - BLOOD PH INCREASED [None]
  - CHOLESTASIS [None]
  - CONFUSIONAL STATE [None]
  - CRYPTOGENIC ORGANISING PNEUMONIA [None]
  - CYTOLYTIC HEPATITIS [None]
  - EOSINOPHILIA [None]
  - HALLUCINATION, VISUAL [None]
  - IMMUNOGLOBULINS INCREASED [None]
  - PLEURAL EFFUSION [None]
  - RESPIRATORY FAILURE [None]
  - RHEUMATOID FACTOR INCREASED [None]
